FAERS Safety Report 6382726-6 (Version None)
Quarter: 2009Q3

REPORT INFORMATION
  Report Type: 
  Country: None (occurrence: None)
  Receive Date: 20090928
  Receipt Date: 20090928
  Transmission Date: 20100115
  Serious: Yes (Disabling)
  Sender: FDA-Public Use
  Company Number: None

PATIENT
  Age: 40 Year
  Sex: Female
  Weight: 63.5036 kg

DRUGS (1)
  1. MIRENA [Suspect]
     Dates: start: 20080404, end: 20090926

REACTIONS (7)
  - AGGRESSION [None]
  - DEPRESSION [None]
  - LOSS OF LIBIDO [None]
  - MOOD SWINGS [None]
  - POLYMENORRHOEA [None]
  - SCREAMING [None]
  - SKIN ODOUR ABNORMAL [None]
